FAERS Safety Report 16349533 (Version 7)
Quarter: 2019Q2

REPORT INFORMATION
  Report Type: Spontaneous
  Country: GB (occurrence: GB)
  Receive Date: 20190523
  Receipt Date: 20190618
  Transmission Date: 20190711
  Serious: Yes (Hospitalization)
  Sender: FDA-Public Use
  Company Number: PHHY2019GB115253

PATIENT
  Age: 22 Year
  Sex: Female

DRUGS (7)
  1. BETAMETHASONE. [Suspect]
     Active Substance: BETAMETHASONE
     Indication: PRODUCT USED FOR UNKNOWN INDICATION
     Route: 030
  2. ERYTHROMYCIN. [Suspect]
     Active Substance: ERYTHROMYCIN
     Indication: ASTHMA
     Dosage: UNK
     Route: 065
  3. COMPOUND SODIUM LACTATE [Suspect]
     Active Substance: CALCIUM CHLORIDE\POTASSIUM CHLORIDE\SODIUM CHLORIDE\SODIUM LACTATE
     Indication: ELECTROLYTE IMBALANCE
     Dosage: UNK
     Route: 065
  4. ERYTHROMYCIN. [Suspect]
     Active Substance: ERYTHROMYCIN
     Indication: DYSPNOEA
  5. PREDNISOLONE. [Suspect]
     Active Substance: PREDNISOLONE
     Indication: DYSPNOEA
  6. ERYTHROMYCIN. [Suspect]
     Active Substance: ERYTHROMYCIN
     Indication: DYSPNOEA
  7. PREDNISOLONE. [Suspect]
     Active Substance: PREDNISOLONE
     Indication: ASTHMA
     Dosage: UNK
     Route: 065

REACTIONS (12)
  - Condition aggravated [Recovered/Resolved]
  - Tachypnoea [Unknown]
  - Dehydration [Unknown]
  - Metabolic acidosis [Recovered/Resolved]
  - Starvation ketoacidosis [Recovered/Resolved]
  - Malaise [Unknown]
  - Maternal exposure during pregnancy [Unknown]
  - Drug interaction [Recovered/Resolved]
  - Tachycardia [Unknown]
  - Vomiting [Unknown]
  - Premature delivery [Unknown]
  - Live birth [Unknown]
